FAERS Safety Report 4305084-7 (Version None)
Quarter: 2004Q1

REPORT INFORMATION
  Report Type: 
  Country: None (occurrence: None)
  Receive Date: 20040224
  Receipt Date: 20040224
  Transmission Date: 20041129
  Serious: Yes (Hospitalization)
  Sender: FDA-Public Use
  Company Number: None

PATIENT
  Sex: Male
  Weight: 79.4 kg

DRUGS (2)
  1. DOCETAXEL [Suspect]
     Indication: THYROID GLAND CANCER
     Dosage: 20MG/M2 WEEKLY IV
     Route: 042
     Dates: start: 20040210, end: 20040210
  2. OSI-774 [Suspect]
     Indication: THYROID GLAND CANCER
     Dosage: 150 MG PER DAY PO
     Route: 048
     Dates: start: 20040210, end: 20040217

REACTIONS (5)
  - ABDOMINAL PAIN [None]
  - DIARRHOEA [None]
  - ENTEROCOLITIS [None]
  - FEBRILE NEUTROPENIA [None]
  - SMALL INTESTINAL OBSTRUCTION [None]
